FAERS Safety Report 9914836 (Version 1)
Quarter: 2014Q1

REPORT INFORMATION
  Report Type: Spontaneous
  Country: US (occurrence: US)
  Receive Date: 20140220
  Receipt Date: 20140220
  Transmission Date: 20141002
  Serious: No
  Sender: FDA-Public Use
  Company Number: US-009507513-1402USA008506

PATIENT
  Sex: Female

DRUGS (1)
  1. NUVARING [Suspect]
     Dosage: 1 RING VAGINALLY, AFTER 3 WEEKS OF USE REMOVE AND REPLACE INMEDIATELY
     Route: 067
     Dates: start: 20130905

REACTIONS (3)
  - Device expulsion [Unknown]
  - Product quality issue [Unknown]
  - No adverse event [Unknown]
